FAERS Safety Report 16771483 (Version 2)
Quarter: 2019Q4

REPORT INFORMATION
  Report Type: Spontaneous
  Country: US (occurrence: US)
  Receive Date: 20190904
  Receipt Date: 20191230
  Transmission Date: 20200122
  Serious: No
  Sender: FDA-Public Use
  Company Number: US-PFIZER INC-2019379010

PATIENT
  Age: 65 Year
  Sex: Female
  Weight: 59.41 kg

DRUGS (1)
  1. XELJANZ XR [Suspect]
     Active Substance: TOFACITINIB CITRATE
     Indication: RHEUMATOID ARTHRITIS
     Dosage: 11 MG, DAILY
     Route: 048

REACTIONS (6)
  - Migraine [Unknown]
  - Sinus congestion [Unknown]
  - Anaemia [Unknown]
  - Tinnitus [Unknown]
  - Depressed mood [Unknown]
  - Headache [Unknown]
